FAERS Safety Report 5696103-4 (Version None)
Quarter: 2008Q2

REPORT INFORMATION
  Report Type: 
  Country: None (occurrence: None)
  Receive Date: 20080407
  Receipt Date: 20080326
  Transmission Date: 20081010
  Serious: Yes (Death)
  Sender: FDA-Public Use
  Company Number: DE-ROCHE-555314

PATIENT
  Sex: Male
  Weight: 125 kg

DRUGS (6)
  1. CAPECITABINE [Suspect]
     Dosage: FREQUENCY: TAKEN DAY 1 UNTIL DAY 15 AS PER PROTOCOL.
     Route: 048
     Dates: start: 20080306, end: 20080319
  2. OXALIPLATIN [Suspect]
     Dosage: FREQUENCY: TAKEN OVER 2 HOURS ON DAY 1 AND DAY 8 AS PER PROTOCOL.
     Route: 042
     Dates: start: 20080306, end: 20080313
  3. DOCETAXEL [Suspect]
     Dosage: FREQUENCY: TAKEN OVER 1 HOUR ON DAY 1 AND DAY 8 AS PER PROTOCOL.
     Route: 042
     Dates: start: 20080306
  4. DEXAMETHASONE [Concomitant]
     Dates: start: 20080306, end: 20080313
  5. STILNOX [Concomitant]
     Dates: start: 20080313, end: 20080324
  6. 1 CONCOMITANT DRUG [Concomitant]
     Dosage: DRUG NAME ILLEGIBLE.
     Dates: start: 20080306, end: 20080313

REACTIONS (1)
  - DEATH [None]
